FAERS Safety Report 4457439-8 (Version None)
Quarter: 2004Q3

REPORT INFORMATION
  Report Type: 
  Country: None (occurrence: None)
  Receive Date: 20040922
  Receipt Date: 20040907
  Transmission Date: 20050211
  Serious: Yes (Hospitalization, Other)
  Sender: FDA-Public Use
  Company Number: USA040874260

PATIENT
  Age: 45 Year
  Sex: Female
  Weight: 55 kg

DRUGS (10)
  1. FORTEO [Suspect]
     Indication: BONE DISORDER
     Dosage: 20 UG DAY
     Dates: start: 20040504
  2. FORTEO [Suspect]
     Indication: OSTEOPOROSIS
     Dosage: 20 UG DAY
     Dates: start: 20040504
  3. DARVOCET-N 100 [Concomitant]
  4. PRILOSEC [Concomitant]
  5. HYDROXYCHLOROQUINE SULFATE [Concomitant]
  6. CELEBREX [Concomitant]
  7. SERZONE [Concomitant]
  8. ACTONEL [Concomitant]
  9. PREDNISONE [Concomitant]
  10. XANAX(ALPRAZOLAM DUM) [Concomitant]

REACTIONS (12)
  - ABDOMINAL ADHESIONS [None]
  - ASCITES [None]
  - BALANCE DISORDER [None]
  - DIZZINESS [None]
  - FALL [None]
  - HERNIA [None]
  - LIMB INJURY [None]
  - MALAISE [None]
  - NAUSEA [None]
  - PHARMACEUTICAL PRODUCT COMPLAINT [None]
  - SMALL INTESTINAL OBSTRUCTION [None]
  - VOLVULUS OF BOWEL [None]
